FAERS Safety Report 8257625-5 (Version None)
Quarter: 2012Q2

REPORT INFORMATION
  Report Type: 
  Country: None (occurrence: None)
  Receive Date: 20120403
  Receipt Date: 20120319
  Transmission Date: 20120825
  Serious: Yes (Other)
  Sender: FDA-Public Use
  Company Number: US-WATSON-2012-05329

PATIENT
  Age: 84 Year
  Sex: Female

DRUGS (3)
  1. VALERIAN ROOT [Suspect]
     Indication: ANXIETY
  2. DIPHENHYDRAMINE HCL [Suspect]
     Indication: INSOMNIA
     Dosage: UNK
     Route: 065
  3. ALCOHOL [Suspect]
     Indication: PRODUCT USED FOR UNKNOWN INDICATION

REACTIONS (2)
  - SEDATION [None]
  - DRUG INTERACTION [None]
